FAERS Safety Report 20751249 (Version 1)
Quarter: 2022Q2

REPORT INFORMATION
  Report Type: Spontaneous
  Country: US (occurrence: US)
  Receive Date: 20220426
  Receipt Date: 20220426
  Transmission Date: 20220720
  Serious: Yes (Other)
  Sender: FDA-Public Use
  Company Number: US-AMGEN-USASP2022071540

PATIENT

DRUGS (1)
  1. PANITUMUMAB [Suspect]
     Active Substance: PANITUMUMAB
     Indication: Colorectal cancer
     Route: 065

REACTIONS (6)
  - Dementia Alzheimer^s type [Unknown]
  - Senile dementia [Unknown]
  - Vascular dementia [Unknown]
  - Cognitive disorder [Unknown]
  - Neurodegenerative disorder [Unknown]
  - Encephalopathy [Unknown]
